FAERS Safety Report 19824509 (Version 1)
Quarter: 2021Q3

REPORT INFORMATION
  Report Type: Spontaneous
  Country: BE (occurrence: BE)
  Receive Date: 20210914
  Receipt Date: 20210914
  Transmission Date: 20211014
  Serious: Yes (Hospitalization, Other)
  Sender: FDA-Public Use
  Company Number: BE-IPCA LABORATORIES LIMITED-IPC-2021-BE-001634

PATIENT

DRUGS (4)
  1. ERYTHROMYCIN. [Concomitant]
     Active Substance: ERYTHROMYCIN
     Indication: AMNIOTIC CAVITY INFECTION
     Dosage: UNK
     Route: 042
  2. PROPRANOLOL [Suspect]
     Active Substance: PROPRANOLOL HYDROCHLORIDE
     Indication: LONG QT SYNDROME
     Dosage: UNK
     Route: 048
  3. AMOXICILLIN. [Concomitant]
     Active Substance: AMOXICILLIN
     Indication: AMNIOTIC CAVITY INFECTION
     Dosage: UNK
     Route: 065
  4. AMIKACIN. [Concomitant]
     Active Substance: AMIKACIN
     Indication: AMNIOTIC CAVITY INFECTION
     Dosage: UNK
     Route: 065

REACTIONS (1)
  - Necrotising enterocolitis neonatal [Recovering/Resolving]
